FAERS Safety Report 5152959-5 (Version None)
Quarter: 2006Q4

REPORT INFORMATION
  Report Type: 
  Country: None (occurrence: None)
  Receive Date: 20061117
  Receipt Date: 20061016
  Transmission Date: 20070319
  Serious: Yes (Hospitalization)
  Sender: FDA-Public Use
  Company Number: US-ABBOTT-06P-163-0346886-00

PATIENT
  Sex: Male
  Weight: 83.536 kg

DRUGS (19)
  1. RITONAVIR SOFT GELATIN CAPSULES [Suspect]
     Indication: HIV INFECTION
     Route: 048
     Dates: start: 20060605, end: 20061002
  2. RITONAVIR SOFT GELATIN CAPSULES [Suspect]
     Route: 048
     Dates: start: 20061003
  3. TMC114 [Concomitant]
     Indication: HIV INFECTION
     Route: 048
     Dates: start: 20060605, end: 20061002
  4. TMC114 [Concomitant]
     Dates: start: 20061003
  5. TRUVADA [Concomitant]
     Indication: DRUG USE FOR UNKNOWN INDICATION
     Dates: start: 20051214
  6. TMC125 (BLINDED) [Concomitant]
     Indication: HIV INFECTION
     Route: 048
     Dates: start: 20060605, end: 20061002
  7. TMC125 (BLINDED) [Concomitant]
     Dates: start: 20061003
  8. ZOLPIDEM TARTRATE [Concomitant]
     Indication: INSOMNIA
     Route: 048
  9. PROMETHAZINE [Concomitant]
     Indication: NAUSEA
     Route: 048
  10. LOPERAMIDE [Concomitant]
     Indication: DIARRHOEA
     Route: 048
  11. DAPSONE [Concomitant]
     Indication: PNEUMOCYSTIS JIROVECI PNEUMONIA
     Route: 048
  12. GABAPENTIN [Concomitant]
     Indication: NEUROPATHY PERIPHERAL
     Route: 048
  13. TRAZODONE HCL [Concomitant]
     Indication: INSOMNIA
     Route: 048
  14. CLOTRIMAZOLE [Concomitant]
     Indication: CANDIDIASIS
     Route: 048
     Dates: start: 20060502
  15. TRIAMCINOLONE ACETONIDE [Concomitant]
     Indication: APHTHOUS STOMATITIS
     Route: 061
     Dates: start: 20060405
  16. NYSTATIN [Concomitant]
     Indication: ORAL CANDIDIASIS
     Route: 048
     Dates: start: 20060502
  17. NYSTATIN [Concomitant]
     Indication: RASH
     Route: 061
     Dates: start: 20060519
  18. IMIQUIMOD [Concomitant]
     Indication: APHTHOUS STOMATITIS
     Route: 061
     Dates: start: 20060630
  19. FUZEON [Concomitant]
     Indication: HIV INFECTION
     Dates: start: 20060605

REACTIONS (2)
  - BRADYCARDIA [None]
  - COSTOCHONDRITIS [None]
